FAERS Safety Report 17183551 (Version 1)
Quarter: 2019Q4

REPORT INFORMATION
  Report Type: Spontaneous
  Country: TR (occurrence: TR)
  Receive Date: 20191220
  Receipt Date: 20191220
  Transmission Date: 20200122
  Serious: Yes (Other)
  Sender: FDA-Public Use
  Company Number: NVSC2019TR074487

PATIENT
  Age: 45 Year
  Sex: Female

DRUGS (5)
  1. DOXORUBICIN [Suspect]
     Active Substance: DOXORUBICIN
     Indication: DIFFUSE LARGE B-CELL LYMPHOMA
     Dosage: UNK (6 COURSES)
     Route: 065
     Dates: end: 200612
  2. PREDNISOLONE. [Suspect]
     Active Substance: PREDNISOLONE
     Indication: DIFFUSE LARGE B-CELL LYMPHOMA
     Dosage: UNK (6 COURSES)
     Route: 065
     Dates: end: 200612
  3. RITUXIMAB. [Suspect]
     Active Substance: RITUXIMAB
     Indication: DIFFUSE LARGE B-CELL LYMPHOMA
     Dosage: UNK (6 COURSES)
     Route: 065
     Dates: end: 200612
  4. CYCLOPHOSPHAMIDE. [Suspect]
     Active Substance: CYCLOPHOSPHAMIDE
     Indication: DIFFUSE LARGE B-CELL LYMPHOMA
     Dosage: UNK (6 COURSES)
     Route: 065
     Dates: end: 200612
  5. VINCRISTINE [Suspect]
     Active Substance: VINCRISTINE
     Indication: DIFFUSE LARGE B-CELL LYMPHOMA
     Dosage: UNK (6 COURSES)
     Route: 065
     Dates: end: 200612

REACTIONS (6)
  - Leukoerythroblastosis [Unknown]
  - Chronic myeloid leukaemia [Unknown]
  - Second primary malignancy [Unknown]
  - Leukocytosis [Unknown]
  - Basophilia [Unknown]
  - Thrombocytosis [Unknown]

NARRATIVE: CASE EVENT DATE: 201012
